FAERS Safety Report 15716900 (Version 1)
Quarter: 2018Q4

REPORT INFORMATION
  Report Type: Spontaneous
  Country: US (occurrence: US)
  Receive Date: 20181213
  Receipt Date: 20181213
  Transmission Date: 20190205
  Serious: No
  Sender: FDA-Public Use
  Company Number: None

PATIENT
  Age: 55 Year
  Sex: Male
  Weight: 81 kg

DRUGS (1)
  1. HYDROCHLOROTHAZIDE 12.5MG CAP UNI [Suspect]
     Active Substance: HYDROCHLOROTHIAZIDE
     Indication: BLOOD PRESSURE MEASUREMENT
     Dosage: ?          QUANTITY:1 CAPSULE(S);?
     Route: 048
     Dates: start: 20181127, end: 20181211

REACTIONS (5)
  - Hypertension [None]
  - Drug ineffective [None]
  - Manufacturing materials issue [None]
  - Product complaint [None]
  - Product substitution issue [None]

NARRATIVE: CASE EVENT DATE: 20181127
